FAERS Safety Report 5202603-3 (Version None)
Quarter: 2006Q4

REPORT INFORMATION
  Report Type: 
  Country: None (occurrence: None)
  Receive Date: 20061016
  Receipt Date: 20060822
  Transmission Date: 20070319
  Serious: No
  Sender: FDA-Public Use
  Company Number: 2006SP003089

PATIENT
  Age: 59 Year
  Sex: Female
  Weight: 99.7913 kg

DRUGS (5)
  1. LUNESTA [Suspect]
     Indication: INSOMNIA
     Dosage: 3 MG; HS ; ORAL
     Route: 048
     Dates: start: 20060821
  2. NEURONTIN [Concomitant]
  3. ZESTRIL [Concomitant]
  4. EFFEXOR XR [Concomitant]
  5. TYLENOL W/ CODEINE [Concomitant]

REACTIONS (2)
  - DYSGEUSIA [None]
  - INSOMNIA [None]
